FAERS Safety Report 16935829 (Version 2)
Quarter: 2019Q4

REPORT INFORMATION
  Report Type: Report from Study
  Country: US (occurrence: US)
  Receive Date: 20191018
  Receipt Date: 20191023
  Transmission Date: 20200122
  Serious: Yes (Death)
  Sender: FDA-Public Use
  Company Number: US-ASTRAZENECA-2019SF46913

PATIENT
  Age: 26192 Day
  Sex: Male
  Weight: 63 kg

DRUGS (1)
  1. LYNPARZA [Suspect]
     Active Substance: OLAPARIB
     Indication: LUNG CANCER METASTATIC
     Dosage: 100 MG 3 PILLS TWO TIMES DAY
     Route: 048
     Dates: start: 201906, end: 20190912

REACTIONS (1)
  - Vomiting [Recovered/Resolved]
